FAERS Safety Report 10037635 (Version 2)
Quarter: 2014Q1

REPORT INFORMATION
  Report Type: Spontaneous
  Country: US (occurrence: US)
  Receive Date: 20140326
  Receipt Date: 20140327
  Transmission Date: 20141002
  Serious: No
  Sender: FDA-Public Use
  Company Number: US-PFIZER INC-2014084974

PATIENT
  Age: 30 Year
  Sex: Male
  Weight: 81.63 kg

DRUGS (2)
  1. EFFEXOR XR [Suspect]
     Indication: DEPRESSION
     Dosage: 300 MG, DAILY
     Dates: start: 200906
  2. LITHIUM [Concomitant]
     Indication: BIPOLAR DISORDER
     Dosage: 500 MG, 3X/DAY

REACTIONS (7)
  - Paraesthesia [Not Recovered/Not Resolved]
  - Drug withdrawal syndrome [Unknown]
  - Dizziness [Unknown]
  - Nausea [Unknown]
  - Fatigue [Unknown]
  - Feeling of body temperature change [Unknown]
  - Influenza like illness [Unknown]
